FAERS Safety Report 9204091 (Version 1)
Quarter: 2013Q2

REPORT INFORMATION
  Report Type: Spontaneous
  Country: SE (occurrence: SE)
  Receive Date: 20130402
  Receipt Date: 20130402
  Transmission Date: 20140414
  Serious: Yes (Hospitalization)
  Sender: FDA-Public Use
  Company Number: SE-PFIZER INC-2013098963

PATIENT
  Age: 56 Year
  Sex: Female

DRUGS (6)
  1. SALAZOPYRIN [Suspect]
     Indication: RHEUMATOID ARTHRITIS
     Dosage: 4 DF, 1X/DAY
     Dates: end: 20121025
  2. SALAZOPYRIN [Suspect]
     Dosage: 6 DF, 1X/DAY
     Dates: start: 20121026, end: 201211
  3. PREDNISOLON [Concomitant]
     Dosage: UNK
  4. WARAN [Concomitant]
     Indication: DEEP VEIN THROMBOSIS
  5. TRADOLAN [Concomitant]
  6. ATENOLOL [Concomitant]

REACTIONS (10)
  - Fatigue [Not Recovered/Not Resolved]
  - Malaise [Recovered/Resolved]
  - Hypoaesthesia [Recovered/Resolved]
  - Headache [Recovered/Resolved]
  - Photophobia [Recovered/Resolved]
  - Hyperacusis [Recovered/Resolved]
  - Pyrexia [Recovered/Resolved]
  - Hallucination, tactile [Recovered/Resolved]
  - Gait disturbance [Recovered/Resolved]
  - C-reactive protein increased [Recovered/Resolved]
